FAERS Safety Report 9406584 (Version 1)
Quarter: 2013Q3

REPORT INFORMATION
  Report Type: Spontaneous
  Country: US (occurrence: US)
  Receive Date: 20130718
  Receipt Date: 20130718
  Transmission Date: 20140515
  Serious: Yes (Death)
  Sender: FDA-Public Use
  Company Number: US-JNJFOC-20130707764

PATIENT
  Age: 48 Year
  Sex: Female

DRUGS (5)
  1. DOXORUBICIN [Suspect]
     Indication: ADENOCARCINOMA
     Route: 034
  2. PREDNISONE [Suspect]
     Indication: ADENOCARCINOMA
     Route: 048
  3. MITOMYCIN C [Suspect]
     Indication: ADENOCARCINOMA
     Route: 034
  4. 5-FLUOROURACIL [Suspect]
     Indication: ADENOCARCINOMA
     Route: 042
  5. LEUCOVORIN [Suspect]
     Indication: ADENOCARCINOMA
     Route: 042

REACTIONS (5)
  - Interstitial lung disease [Fatal]
  - Pulmonary fibrosis [Fatal]
  - Sepsis [Fatal]
  - Off label use [Unknown]
  - Incorrect route of drug administration [Unknown]
